FAERS Safety Report 20516016 (Version 2)
Quarter: 2022Q1

REPORT INFORMATION
  Report Type: Spontaneous
  Country: US (occurrence: None)
  Receive Date: 20220225
  Receipt Date: 20220314
  Transmission Date: 20220423
  Serious: Yes (Other)
  Sender: FDA-Public Use
  Company Number: US-Merck Healthcare KGaA-9301439

PATIENT
  Age: 22 Year
  Sex: Female
  Weight: 91 kg

DRUGS (5)
  1. REBIF [Suspect]
     Active Substance: INTERFERON BETA-1A
     Indication: Multiple sclerosis
     Dosage: REBIF PREFILLED SYRINGE
     Route: 058
     Dates: start: 20190930
  2. REBIF [Suspect]
     Active Substance: INTERFERON BETA-1A
     Dosage: REBIF PREFILLED SYRINGE
     Route: 058
     Dates: start: 201910
  3. BUSPAR [Concomitant]
     Active Substance: BUSPIRONE HYDROCHLORIDE
     Indication: Anxiety
     Route: 048
  4. ERGOCALCIFEROL [Concomitant]
     Active Substance: ERGOCALCIFEROL
     Indication: Product used for unknown indication
     Dosage: DAILY
     Route: 048
  5. APRI [Concomitant]
     Active Substance: DESOGESTREL\ETHINYL ESTRADIOL
     Indication: Product used for unknown indication
     Dosage: DAILY
     Route: 048

REACTIONS (1)
  - Optic neuritis [Recovered/Resolved]

NARRATIVE: CASE EVENT DATE: 20210901
